FAERS Safety Report 18238400 (Version 4)
Quarter: 2021Q1

REPORT INFORMATION
  Report Type: Report from Study
  Country: US (occurrence: US)
  Receive Date: 20200907
  Receipt Date: 20210218
  Transmission Date: 20210419
  Serious: Yes (Death, Other)
  Sender: FDA-Public Use
  Company Number: NVSC2020US242389

PATIENT
  Age: 19 Year
  Sex: Male
  Weight: 99 kg

DRUGS (4)
  1. KYMRIAH [Suspect]
     Active Substance: TISAGENLECLEUCEL
     Indication: LYMPHOCYTIC LEUKAEMIA
     Dosage: 30 ML, ONCE/SINGLE
     Route: 042
     Dates: start: 20200706, end: 20200706
  2. CYCLOPHOSPHAMIDE. [Concomitant]
     Active Substance: CYCLOPHOSPHAMIDE
     Indication: CHEMOTHERAPY
     Route: 065
  3. KYMRIAH [Suspect]
     Active Substance: TISAGENLECLEUCEL
     Indication: ACUTE LYMPHOCYTIC LEUKAEMIA
  4. FLUDARABINE [Concomitant]
     Active Substance: FLUDARABINE PHOSPHATE
     Indication: CHEMOTHERAPY
     Route: 065

REACTIONS (16)
  - Neutrophil count abnormal [Not Recovered/Not Resolved]
  - Blood pressure decreased [Recovered/Resolved]
  - Cytopenia [Unknown]
  - Pneumonia fungal [Unknown]
  - Cytokine release syndrome [Recovered/Resolved]
  - Cytomegalovirus test positive [Unknown]
  - Thrombocytopenia [Unknown]
  - Pancytopenia [Not Recovered/Not Resolved]
  - Cytomegalovirus infection [Unknown]
  - Bone marrow failure [Not Recovered/Not Resolved]
  - Pyrexia [Recovered/Resolved]
  - Hypogammaglobulinaemia [Unknown]
  - Klebsiella infection [Unknown]
  - Aspergillus infection [Unknown]
  - Nephropathy toxic [Unknown]
  - Death [Fatal]

NARRATIVE: CASE EVENT DATE: 20200711
